FAERS Safety Report 10146336 (Version 1)
Quarter: 2014Q2

REPORT INFORMATION
  Report Type: Spontaneous
  Country: CH (occurrence: CH)
  Receive Date: 20140501
  Receipt Date: 20140501
  Transmission Date: 20141212
  Serious: Yes (Other)
  Sender: FDA-Public Use
  Company Number: CH-BAYER-2014-061725

PATIENT
  Sex: Female

DRUGS (1)
  1. BETAFERON [Suspect]

REACTIONS (3)
  - Urosepsis [None]
  - Cystitis [None]
  - Nephrolithiasis [None]
